FAERS Safety Report 18923770 (Version 1)
Quarter: 2021Q1

REPORT INFORMATION
  Report Type: Spontaneous
  Country: BR (occurrence: BR)
  Receive Date: 20210222
  Receipt Date: 20210222
  Transmission Date: 20210420
  Serious: Yes (Hospitalization, Other)
  Sender: FDA-Public Use
  Company Number: BR-JNJFOC-20210236089

PATIENT
  Age: 87 Year
  Sex: Female

DRUGS (1)
  1. RIVAROXABAN [Suspect]
     Active Substance: RIVAROXABAN
     Indication: THROMBOSIS
     Dosage: 20 MG, QD
     Route: 048
     Dates: start: 202009, end: 20210214

REACTIONS (3)
  - Abnormal faeces [Unknown]
  - Haematochezia [Unknown]
  - Fall [Unknown]

NARRATIVE: CASE EVENT DATE: 202011
